FAERS Safety Report 18645685 (Version 1)
Quarter: 2020Q4

REPORT INFORMATION
  Report Type: Spontaneous
  Country: DE (occurrence: DE)
  Receive Date: 20201222
  Receipt Date: 20201222
  Transmission Date: 20210114
  Serious: Yes (Other)
  Sender: FDA-Public Use
  Company Number: DE-AMGEN-DEUSP2020205967

PATIENT
  Age: 71 Year
  Sex: Female
  Weight: 56 kg

DRUGS (8)
  1. KALINOR [CITRIC ACID;POTASSIUM BICARBONATE;POTASSIUM CITRATE] [Concomitant]
     Active Substance: CITRIC ACID MONOHYDRATE\POTASSIUM BICARBONATE\POTASSIUM CITRATE
     Route: 048
  2. DEKRISTOL [Concomitant]
     Active Substance: CHOLECALCIFEROL
     Route: 048
  3. CAPECITABINE. [Suspect]
     Active Substance: CAPECITABINE
     Indication: BREAST CANCER
     Dosage: 2000 MILLIGRAM
     Route: 048
     Dates: start: 20201016
  4. ZINK [ZINC] [Concomitant]
     Active Substance: ZINC
     Route: 048
  5. BEVACIZUMAB. [Suspect]
     Active Substance: BEVACIZUMAB
     Indication: HER2 NEGATIVE BREAST CANCER
     Dosage: 15 MILLIGRAM
     Route: 042
     Dates: start: 20201016
  6. PANTOPRAZOL [PANTOPRAZOLE] [Concomitant]
     Active Substance: PANTOPRAZOLE
     Route: 048
  7. SELEN [SELENIUM] [Concomitant]
     Route: 048
  8. ASPIRIN. [Concomitant]
     Active Substance: ASPIRIN
     Route: 048

REACTIONS (5)
  - Hypertension [Unknown]
  - Visual impairment [Unknown]
  - Palmar-plantar erythrodysaesthesia syndrome [Unknown]
  - Fatigue [Unknown]
  - Off label use [Unknown]

NARRATIVE: CASE EVENT DATE: 20201016
